FAERS Safety Report 23580383 (Version 1)
Quarter: 2024Q1

REPORT INFORMATION
  Report Type: Spontaneous
  Country: US (occurrence: None)
  Receive Date: 20240229
  Receipt Date: 20240229
  Transmission Date: 20240410
  Serious: Yes (Death, Hospitalization)
  Sender: FDA-Public Use
  Company Number: None

PATIENT
  Sex: Male

DRUGS (1)
  1. ABIRATERONE ACETATE [Suspect]
     Active Substance: ABIRATERONE ACETATE
     Indication: Neoplasm prostate
     Dosage: FREQUENCY : DAILY;?
     Route: 048
     Dates: start: 20190130

REACTIONS (2)
  - Urinary tract infection [None]
  - Urosepsis [None]
